FAERS Safety Report 4895748-9 (Version None)
Quarter: 2006Q1

REPORT INFORMATION
  Report Type: 
  Country: None (occurrence: None)
  Receive Date: 20060124
  Receipt Date: 20060106
  Transmission Date: 20060701
  Serious: Yes (Other)
  Sender: FDA-Public Use
  Company Number: 200410546BBE

PATIENT
  Sex: Male

DRUGS (23)
  1. HYPRHO-D [Suspect]
     Dosage: SEE IMAGE
     Dates: start: 19941216
  2. HYPRHO-D [Suspect]
  3. PRELONE [Concomitant]
  4. HEPATITIS B VACCINE [Concomitant]
  5. RACEMIC EPINEPHRINE [Concomitant]
  6. ROCEPHIN [Concomitant]
  7. AMPICILLIN SODIUM [Concomitant]
  8. DECADRON PHOSPHATE [Concomitant]
  9. RITALIN [Concomitant]
  10. CORTICOSTEROIDS [Concomitant]
  11. SOLU-MEDROL [Concomitant]
  12. ALBUTEROL [Concomitant]
  13. STRATTERA [Concomitant]
  14. CONCERTA [Concomitant]
  15. AQUAMEPHYTON [Concomitant]
  16. ERYTHROMYCIN [Concomitant]
  17. DPT [Concomitant]
  18. ORIMUNE [Concomitant]
  19. HIB-IMUNE [Concomitant]
  20. M-M-R II [Concomitant]
  21. IPV [Concomitant]
  22. VARICELLA [Concomitant]
  23. THIMEROSAL ^ MERTHIOLATE ^ ( THIMEROSAL) [Suspect]

REACTIONS (15)
  - ADENOIDAL HYPERTROPHY [None]
  - ATTENTION DEFICIT/HYPERACTIVITY DISORDER [None]
  - AUTISM [None]
  - BLOOD MERCURY ABNORMAL [None]
  - BRONCHIOLITIS [None]
  - BRONCHITIS ACUTE [None]
  - CROUP INFECTIOUS [None]
  - DRUG EXPOSURE DURING PREGNANCY [None]
  - FOETAL TOBACCO EXPOSURE [None]
  - INTERSTITIAL LUNG DISEASE [None]
  - LARYNGEAL STENOSIS [None]
  - NEURODEVELOPMENTAL DISORDER [None]
  - OTITIS MEDIA CHRONIC [None]
  - PHARMACEUTICAL PRODUCT COMPLAINT [None]
  - VIRAL PHARYNGITIS [None]
